FAERS Safety Report 8484967-0 (Version None)
Quarter: 2012Q3

REPORT INFORMATION
  Report Type: 
  Country: None (occurrence: None)
  Receive Date: 20120703
  Receipt Date: 20120627
  Transmission Date: 20120928
  Serious: Yes (Hospitalization)
  Sender: FDA-Public Use
  Company Number: BR-PFIZER INC-2012146045

PATIENT
  Age: 76 Year
  Sex: Male
  Weight: 74 kg

DRUGS (6)
  1. FOLIC ACID [Concomitant]
  2. FINASTERIDE [Concomitant]
     Dosage: 120 MG, 1X/DAY (ONE TABLET DAILY)
  3. VITAMIN B COMPLEX CAP [Concomitant]
  4. LEVOTHYROXINE SODIUM [Concomitant]
     Dosage: 100 MG DAILY
  5. SUTENT [Suspect]
     Indication: RENAL CELL CARCINOMA
     Dosage: 50 MG, 1X/DAY, CYCLE 4X2
     Route: 048
     Dates: start: 20111231
  6. SUTENT [Suspect]
     Indication: RENAL CANCER

REACTIONS (5)
  - PNEUMONIA [None]
  - URINARY TRACT INFECTION [None]
  - HYPERKERATOSIS [None]
  - LUNG INFECTION [None]
  - IMMUNODEFICIENCY [None]
